FAERS Safety Report 5659532-0 (Version None)
Quarter: 2008Q1

REPORT INFORMATION
  Report Type: 
  Country: None (occurrence: None)
  Receive Date: 20080311
  Receipt Date: 20080306
  Transmission Date: 20080703
  Serious: Yes (Death, Life-Threatening, Hospitalization)
  Sender: FDA-Public Use
  Company Number: JP-SANOFI-SYNTHELABO-F01200800384

PATIENT
  Sex: Female

DRUGS (6)
  1. PARIET [Concomitant]
     Dates: start: 20070923, end: 20071106
  2. CALCIUM LEVOFOLINATE [Suspect]
     Route: 042
     Dates: start: 20070919, end: 20070919
  3. FLUOROURACIL [Suspect]
     Route: 042
     Dates: start: 20070919, end: 20070919
  4. IRINOTECAN HYDROCHLORIDE [Suspect]
     Route: 042
     Dates: start: 20070919, end: 20070919
  5. BEVACIZUMAB [Suspect]
     Route: 042
     Dates: start: 20070919, end: 20070919
  6. OXALIPLATIN [Suspect]
     Indication: COLON CANCER METASTATIC
     Route: 042
     Dates: start: 20070919, end: 20070919

REACTIONS (4)
  - ANAEMIA [None]
  - DISEASE PROGRESSION [None]
  - NEUTROPHIL COUNT DECREASED [None]
  - PLATELET COUNT DECREASED [None]
